FAERS Safety Report 6818958-X (Version None)
Quarter: 2010Q3

REPORT INFORMATION
  Report Type: 
  Country: None (occurrence: None)
  Receive Date: 20100707
  Receipt Date: 20100311
  Transmission Date: 20110219
  Serious: Yes (Hospitalization, Other)
  Sender: FDA-Public Use
  Company Number: US-ASTRAZENECA-2007UW18496

PATIENT
  Age: 15091 Day
  Sex: Male
  Weight: 150.6 kg

DRUGS (54)
  1. SEROQUEL [Suspect]
     Indication: INSOMNIA
     Route: 048
     Dates: start: 20020719, end: 20050401
  2. SEROQUEL [Suspect]
     Indication: SLEEP DISORDER
     Route: 048
     Dates: start: 20020719, end: 20050401
  3. SEROQUEL [Suspect]
     Route: 048
     Dates: start: 20020719, end: 20050401
  4. SEROQUEL [Suspect]
     Route: 048
     Dates: start: 20020719, end: 20050401
  5. SEROQUEL [Suspect]
     Route: 048
     Dates: start: 20020719, end: 20050401
  6. SEROQUEL [Suspect]
     Route: 048
     Dates: start: 20020719, end: 20050401
  7. SEROQUEL [Suspect]
     Route: 048
     Dates: start: 20020719, end: 20050401
  8. SEROQUEL [Suspect]
     Route: 048
     Dates: start: 20020719, end: 20050401
  9. SEROQUEL [Suspect]
     Dosage: 25 MG - 300 MG
     Route: 048
     Dates: start: 20020719
  10. SEROQUEL [Suspect]
     Dosage: 25 MG - 300 MG
     Route: 048
     Dates: start: 20020719
  11. SEROQUEL [Suspect]
     Dosage: 200 TO 400 MG
     Route: 048
     Dates: start: 20040604
  12. SEROQUEL [Suspect]
     Dosage: 200 TO 400 MG
     Route: 048
     Dates: start: 20040604
  13. ZYPREXA [Concomitant]
  14. METFORMIN HCL [Concomitant]
  15. ALTACE [Concomitant]
  16. HYDROCHLOROTHIAZIDE [Concomitant]
  17. ZOLOFT [Concomitant]
  18. IMDUR [Concomitant]
  19. ADVAIR DISKUS 100/50 [Concomitant]
  20. PROTONIX [Concomitant]
  21. WELLBUTRIN [Concomitant]
  22. NAPROSYN [Concomitant]
  23. ATENOLOL [Concomitant]
  24. ANDROGEL [Concomitant]
  25. NEXIUM [Concomitant]
  26. SIMVASTATIN [Concomitant]
  27. ATROVENT [Concomitant]
  28. REGLAN [Concomitant]
  29. PERCOCET [Concomitant]
  30. ANCEF [Concomitant]
  31. TYLENOL [Concomitant]
  32. OXYCONTIN [Concomitant]
  33. MORPHINE [Concomitant]
  34. AMBIEN [Concomitant]
  35. HYDROXYZINE [Concomitant]
  36. LOVENOX [Concomitant]
  37. NABUMETONE [Concomitant]
  38. DRYSOL [Concomitant]
  39. NITROSTAT [Concomitant]
  40. VICODIN [Concomitant]
  41. REMERON [Concomitant]
  42. CONCERTA [Concomitant]
  43. TRIMOX [Concomitant]
  44. MIRAPEX [Concomitant]
  45. FERROUS SULFATE [Concomitant]
  46. VIOXX [Concomitant]
  47. CELEBREX [Concomitant]
  48. LISINOPRIL [Concomitant]
  49. ALBUTEROL [Concomitant]
  50. TRAZODONE HYDROCHLORIDE [Concomitant]
  51. NASONEX [Concomitant]
  52. RANITIDINE [Concomitant]
  53. ETODOLAC [Concomitant]
  54. NYSTATIN [Concomitant]

REACTIONS (21)
  - ANGER [None]
  - ANGINA PECTORIS [None]
  - ASTHMA [None]
  - ATTENTION DEFICIT/HYPERACTIVITY DISORDER [None]
  - BACK DISORDER [None]
  - CHEST PAIN [None]
  - DIABETIC NEUROPATHY [None]
  - DISTURBANCE IN ATTENTION [None]
  - DYSPNOEA [None]
  - ERECTILE DYSFUNCTION [None]
  - HEART RATE IRREGULAR [None]
  - JOINT INJURY [None]
  - MEMORY IMPAIRMENT [None]
  - MOOD SWINGS [None]
  - MUSCULOSKELETAL DISORDER [None]
  - NASAL DISORDER [None]
  - OSTEOARTHRITIS [None]
  - PAIN IN EXTREMITY [None]
  - RESTLESS LEGS SYNDROME [None]
  - SLEEP APNOEA SYNDROME [None]
  - TYPE 2 DIABETES MELLITUS [None]
